FAERS Safety Report 6839188-1 (Version None)
Quarter: 2010Q2

REPORT INFORMATION
  Report Type: 
  Country: None (occurrence: None)
  Receive Date: 20100629
  Receipt Date: 20100322
  Transmission Date: 20101027
  Serious: No
  Sender: FDA-Public Use
  Company Number: US-WYE-H12855310

PATIENT
  Age: 67 Year
  Sex: Female
  Weight: 86.26 kg

DRUGS (7)
  1. TORISEL [Suspect]
     Indication: RENAL CELL CARCINOMA
     Dosage: 25 MG 1X PER 1 WK, INTRAVENOUS
     Route: 042
     Dates: start: 20091102
  2. LASIX [Concomitant]
  3. ZOCOR [Concomitant]
  4. LISINOPRIL [Concomitant]
  5. FLEXERIL [Concomitant]
  6. CLONIDINE [Concomitant]
  7. BENADRYL [Concomitant]

REACTIONS (6)
  - ANAEMIA [None]
  - DECREASED APPETITE [None]
  - FORMICATION [None]
  - HYPERSENSITIVITY [None]
  - SWOLLEN TONGUE [None]
  - WEIGHT DECREASED [None]
